FAERS Safety Report 14719899 (Version 1)
Quarter: 2018Q1

REPORT INFORMATION
  Report Type: Spontaneous
  Country: US (occurrence: US)
  Receive Date: 20180330
  Receipt Date: 20180330
  Transmission Date: 20180509
  Serious: No
  Sender: FDA-Public Use
  Company Number: None

PATIENT
  Age: 65 Year
  Sex: Female

DRUGS (1)
  1. IBRANCE [Suspect]
     Active Substance: PALBOCICLIB
     Indication: BREAST CANCER FEMALE
     Dosage: ?          OTHER FREQUENCY:DAILY X 21 DAYS/28;?
     Route: 048
     Dates: start: 20170531

REACTIONS (3)
  - Tenderness [None]
  - Paraesthesia [None]
  - Hyperaesthesia [None]

NARRATIVE: CASE EVENT DATE: 20180127
